FAERS Safety Report 4300027-4 (Version None)
Quarter: 2004Q1

REPORT INFORMATION
  Report Type: 
  Country: None (occurrence: None)
  Receive Date: 20040219
  Receipt Date: 20040219
  Transmission Date: 20041129
  Serious: Yes (Hospitalization)
  Sender: FDA-Public Use
  Company Number: None

PATIENT
  Age: 52 Year
  Sex: Male
  Weight: 92.9874 kg

DRUGS (8)
  1. WARFARIN SODIUM [Suspect]
     Indication: DEEP VEIN THROMBOSIS
     Dosage: 100
  2. WARFARIN SODIUM [Suspect]
     Indication: PROTEIN C
     Dosage: 100
  3. FOSINOPRIL SODIUM [Concomitant]
  4. GEMFIBROZIL [Concomitant]
  5. METOPROLOL [Concomitant]
  6. SERTRALINE HCL [Concomitant]
  7. NITROGLYCERIN [Concomitant]
  8. RABEPRAZOLE SODIUM [Concomitant]

REACTIONS (4)
  - CHEST PAIN [None]
  - DRUG LEVEL BELOW THERAPEUTIC [None]
  - HAEMOPTYSIS [None]
  - TREATMENT NONCOMPLIANCE [None]
